FAERS Safety Report 10157653 (Version 1)
Quarter: 2014Q2

REPORT INFORMATION
  Report Type: Spontaneous
  Country: US (occurrence: US)
  Receive Date: 20140507
  Receipt Date: 20140507
  Transmission Date: 20141212
  Serious: No
  Sender: FDA-Public Use
  Company Number: US-SHIRE-US201401990

PATIENT
  Age: 66 Year
  Sex: Male
  Weight: 107.94 kg

DRUGS (16)
  1. LIALDA [Suspect]
     Indication: COLITIS ULCERATIVE
     Dosage: 3.6 G(THREE 1.2G TABLETS), 1X/DAY:QD
     Route: 048
     Dates: start: 2012
  2. ANDROGEL [Concomitant]
     Indication: BLOOD TESTOSTERONE DECREASED
     Dosage: 50 MG, 1X/DAY:QD(M,TH, F, S, S)
     Route: 062
  3. ANDROGEL [Concomitant]
     Dosage: 100 MG, 1X/DAY:QD (TUES + WED)
     Route: 062
  4. LANTUS [Concomitant]
     Indication: DIABETES MELLITUS
     Dosage: 25 IU, 1X/DAY:QD
     Route: 058
  5. LANTUS [Concomitant]
     Dosage: UNK(UP TO 125 IU BASED ON BLOOD SUGAR RESULTS), 1X/DAY:QD(PM)
     Route: 058
  6. AMLODIPINE [Concomitant]
     Indication: HYPERTENSION
     Dosage: 10 MG, 1X/DAY:QD
     Route: 048
  7. ASPIRIN [Concomitant]
     Indication: ANTICOAGULANT THERAPY
     Dosage: 81 MG, 1X/DAY:QD
     Route: 048
  8. CRESTOR [Concomitant]
     Indication: BLOOD CHOLESTEROL
     Dosage: 5 MG, 1X/DAY:QD
     Route: 048
  9. CLOPIDOGREL [Concomitant]
     Indication: ANTICOAGULANT THERAPY
     Dosage: 75 MG, 1X/DAY:QD
     Route: 048
  10. ZETIA [Concomitant]
     Indication: BLOOD CHOLESTEROL
     Dosage: 10 MG, 1X/DAY:QD
     Route: 048
  11. QUINAPRIL [Concomitant]
     Indication: CARDIAC DISORDER
     Dosage: 20 MG, 2X/DAY:BID
     Route: 048
  12. HCTZ [Concomitant]
     Indication: BLOOD PRESSURE
     Dosage: 50 MG, 1X/DAY:QD
     Route: 048
     Dates: start: 2014
  13. FOLIC ACID [Concomitant]
     Indication: COLITIS
     Dosage: 1 %, 1X/DAY:QD
     Route: 048
  14. PRILOSEC                           /00661201/ [Concomitant]
     Indication: GASTROOESOPHAGEAL REFLUX DISEASE
     Dosage: 20 MG, 1X/DAY:QD
     Route: 048
  15. SPIRIVA HANDIHALER [Concomitant]
     Indication: RESPIRATORY DISORDER
     Dosage: 18 MG, 1X/DAY:QD
     Route: 055
     Dates: start: 2012
  16. ADVAIR [Concomitant]
     Indication: RESPIRATORY DISORDER
     Dosage: UNK(250/50MG), 2X/DAY:BID
     Route: 055
     Dates: start: 2012

REACTIONS (2)
  - Pain [Recovering/Resolving]
  - Rotator cuff syndrome [Recovering/Resolving]
